FAERS Safety Report 7260010-6 (Version None)
Quarter: 2011Q1

REPORT INFORMATION
  Report Type: 
  Country: None (occurrence: None)
  Receive Date: 20110130
  Receipt Date: 20101015
  Transmission Date: 20110831
  Serious: No
  Sender: FDA-Public Use
  Company Number: US-ABBOTT-10P-163-0679125-00

PATIENT
  Age: 80 Year
  Sex: Male

DRUGS (13)
  1. ATENOLOL [Concomitant]
     Indication: HYPERTENSION
  2. DIOVAN [Concomitant]
     Indication: PRODUCT USED FOR UNKNOWN INDICATION
  3. HUMIRA [Suspect]
     Dosage: 80MG DUE ON 16 OCT 2010
     Dates: start: 20101002
  4. IBUPROFEN [Concomitant]
     Indication: PAIN
     Dosage: AS NEEDED
  5. ASPIRIN [Concomitant]
     Indication: PRODUCT USED FOR UNKNOWN INDICATION
  6. PENTASA [Concomitant]
     Indication: CROHN'S DISEASE
  7. HYDROCODONE [Concomitant]
     Indication: PAIN
  8. DESMOPRESSIN ACETATE [Concomitant]
     Indication: PRODUCT USED FOR UNKNOWN INDICATION
  9. DREON [Concomitant]
     Indication: PRODUCT USED FOR UNKNOWN INDICATION
  10. UROXITOL [Concomitant]
     Indication: PROSTATIC DISORDER
  11. TYLENOL PM [Concomitant]
     Indication: INSOMNIA
  12. HUMIRA [Suspect]
     Indication: CROHN'S DISEASE
     Dates: start: 20101001, end: 20101001
  13. SIMVASTATIN [Concomitant]
     Indication: BLOOD CHOLESTEROL INCREASED

REACTIONS (6)
  - PYREXIA [None]
  - DYSURIA [None]
  - DECREASED APPETITE [None]
  - FATIGUE [None]
  - ASTHENIA [None]
  - DIARRHOEA [None]
